FAERS Safety Report 12130397 (Version 1)
Quarter: 2016Q1

REPORT INFORMATION
  Report Type: Spontaneous
  Country: US (occurrence: US)
  Receive Date: 20160301
  Receipt Date: 20160301
  Transmission Date: 20160526
  Serious: Yes (Other)
  Sender: FDA-Public Use
  Company Number: US-TEVA-639473ACC

PATIENT
  Age: 45 Year
  Sex: Female
  Weight: 78.09 kg

DRUGS (2)
  1. IMITREX [Concomitant]
     Active Substance: SUMATRIPTAN SUCCINATE
     Indication: MIGRAINE
  2. PARAGARD T 380A [Suspect]
     Active Substance: COPPER
     Indication: CONTRACEPTION
     Dates: start: 2009, end: 20160223

REACTIONS (2)
  - Unintentional medical device removal [Unknown]
  - Cervical polyp [Unknown]

NARRATIVE: CASE EVENT DATE: 20160204
